FAERS Safety Report 11204104 (Version 1)
Quarter: 2015Q2

REPORT INFORMATION
  Report Type: Spontaneous
  Country: GB (occurrence: GB)
  Receive Date: 20150619
  Receipt Date: 20150619
  Transmission Date: 20150821
  Serious: Yes (Hospitalization)
  Sender: FDA-Public Use
  Company Number: GB-HOSPIRA-2842997

PATIENT
  Age: 58 Year
  Sex: Male

DRUGS (1)
  1. ERYTHROMYCIN. [Suspect]
     Active Substance: ERYTHROMYCIN
     Indication: HERPES ZOSTER
     Dosage: DAILY
     Route: 048
     Dates: start: 20071103, end: 20071105

REACTIONS (3)
  - Electrocardiogram ST segment elevation [Recovered/Resolved]
  - Abdominal discomfort [Recovered/Resolved]
  - Chest discomfort [Recovered/Resolved]

NARRATIVE: CASE EVENT DATE: 20071105
